FAERS Safety Report 4662061-4 (Version None)
Quarter: 2005Q2

REPORT INFORMATION
  Report Type: 
  Country: None (occurrence: None)
  Receive Date: 20050512
  Receipt Date: 20050507
  Transmission Date: 20051028
  Serious: Yes (Life-Threatening, Hospitalization, Other)
  Sender: FDA-Public Use
  Company Number: 2005051619

PATIENT
  Age: 37 Year
  Sex: Female

DRUGS (1)
  1. CELEBREX [Suspect]
     Indication: ARTHRITIS
     Dosage: 400 MG (200 MG, 2 I N 1 D), ORAL
     Route: 048
     Dates: start: 20050321

REACTIONS (7)
  - BLOOD PRESSURE INCREASED [None]
  - ERYTHEMA [None]
  - HOT FLUSH [None]
  - JOINT SWELLING [None]
  - OEDEMA PERIPHERAL [None]
  - PULMONARY THROMBOSIS [None]
  - SWELLING FACE [None]
